FAERS Safety Report 5056735-3 (Version None)
Quarter: 2006Q2

REPORT INFORMATION
  Report Type: 
  Country: None (occurrence: None)
  Receive Date: 20060616
  Receipt Date: 20060426
  Transmission Date: 20061013
  Serious: No
  Sender: FDA-Public Use
  Company Number: 2006US000928

PATIENT
  Age: 59 Year
  Sex: Female

DRUGS (1)
  1. VESICARE [Suspect]
     Indication: DRUG USE FOR UNKNOWN INDICATION

REACTIONS (5)
  - BACK PAIN [None]
  - CHEST DISCOMFORT [None]
  - DYSPEPSIA [None]
  - OEDEMA [None]
  - PALPITATIONS [None]
